FAERS Safety Report 5821503-9 (Version None)
Quarter: 2008Q3

REPORT INFORMATION
  Report Type: 
  Country: None (occurrence: None)
  Receive Date: 20080724
  Receipt Date: 20080722
  Transmission Date: 20090109
  Serious: Yes (Death, Other)
  Sender: FDA-Public Use
  Company Number: JP-BRISTOL-MYERS SQUIBB COMPANY-14275333

PATIENT
  Age: 32 Year
  Sex: Male

DRUGS (7)
  1. REYATAZ [Suspect]
     Indication: HIV INFECTION
     Route: 048
     Dates: start: 20040528, end: 20071213
  2. ZIAGEN [Suspect]
     Indication: HIV INFECTION
     Dosage: INTERUPTED ON 13-JUN-2005 AND RESTARTED ON 22-AUG-2006
     Route: 048
     Dates: start: 20040528, end: 20071213
  3. NORVIR [Suspect]
     Indication: HIV INFECTION
     Route: 048
     Dates: start: 20040528, end: 20071213
  4. EPIVIR [Suspect]
     Indication: HIV INFECTION
     Dosage: INTERUPPTED ON 13-JUN-2005 AND RESTARTED ON 22-AUG-2006
     Route: 048
     Dates: start: 20050420, end: 20071213
  5. EPZICOM [Suspect]
     Indication: HIV INFECTION
     Route: 048
     Dates: start: 20050614, end: 20060821
  6. CLARITHROMYCIN [Concomitant]
     Route: 048
     Dates: start: 20051014, end: 20071213
  7. PENFILL R [Concomitant]
     Dosage: ALSO RECIVED 16 IU FROM 14-JAN-2004 TO 01-MAY-2006
     Route: 058
     Dates: start: 20040114, end: 20060501

REACTIONS (2)
  - RENAL IMPAIRMENT [None]
  - SUBARACHNOID HAEMORRHAGE [None]
